FAERS Safety Report 15320496 (Version 1)
Quarter: 2018Q3

REPORT INFORMATION
  Report Type: Spontaneous
  Country: US (occurrence: US)
  Receive Date: 20180821
  Receipt Date: 20180821
  Transmission Date: 20181010
  Serious: Yes (Other)
  Sender: FDA-Public Use
  Company Number: None

PATIENT
  Age: 27 Month
  Sex: Male
  Weight: 9 kg

DRUGS (4)
  1. PROBIOTICS [Concomitant]
     Active Substance: PROBIOTICS NOS
  2. RESTORE [Concomitant]
     Active Substance: GLYCERIN
  3. MIRALAX [Suspect]
     Active Substance: POLYETHYLENE GLYCOL 3350
     Indication: CONSTIPATION
     Route: 048
     Dates: start: 20160425, end: 20170831
  4. LACTOLSE [Concomitant]

REACTIONS (3)
  - Aggression [None]
  - Dental caries [None]
  - Anger [None]

NARRATIVE: CASE EVENT DATE: 20160430
